FAERS Safety Report 16827744 (Version 1)
Quarter: 2019Q3

REPORT INFORMATION
  Report Type: Spontaneous
  Country: US (occurrence: US)
  Receive Date: 20190919
  Receipt Date: 20190919
  Transmission Date: 20191005
  Serious: No
  Sender: FDA-Public Use
  Company Number: US-PFIZER INC-2019399607

PATIENT
  Age: 74 Year
  Sex: Female
  Weight: 63.5 kg

DRUGS (8)
  1. CALCIUM, MAGNESIUM + VITAMIN D3 [Concomitant]
     Active Substance: CALCIUM\CHOLECALCIFEROL\MAGNESIUM
     Indication: BONE DISORDER
     Dosage: 333MG, 100IU, 133MG, 5MG, 2X/DAY
  2. GLUCOSAMINE + CHONDROITIN + MSM [Concomitant]
     Dosage: 1200 MG, UNK
  3. CENTRUM SILVER +50 [Concomitant]
     Indication: SUPPLEMENTATION THERAPY
     Dosage: UNK, 1X/DAY
  4. VITAMIN C [Concomitant]
     Active Substance: ASCORBIC ACID
     Indication: INFECTION
     Dosage: 1000 MG, UNK
  5. TRIAMTERENE. [Concomitant]
     Active Substance: TRIAMTERENE
     Indication: BLOOD PRESSURE ABNORMAL
     Dosage: UNK (37.5-25MG )
  6. GLUCOSAMINE + CHONDROITIN + MSM [Concomitant]
     Dosage: 900 MG, UNK
  7. AMLODIPINE BESILATE [Suspect]
     Active Substance: AMLODIPINE BESYLATE
     Indication: BLOOD PRESSURE ABNORMAL
     Dosage: 2.5 MG, 1X/DAY
     Route: 048
  8. GLUCOSAMINE + CHONDROITIN + MSM [Concomitant]
     Indication: ARTHROPATHY
     Dosage: 1500 MG, UNK

REACTIONS (1)
  - Rash [Not Recovered/Not Resolved]
